FAERS Safety Report 5728009-6 (Version None)
Quarter: 2008Q2

REPORT INFORMATION
  Report Type: 
  Country: None (occurrence: None)
  Receive Date: 20080505
  Receipt Date: 20080429
  Transmission Date: 20081010
  Serious: Yes (Hospitalization, Disabling)
  Sender: FDA-Public Use
  Company Number: CH-BOEHRINGER INGELHEIM GMBH, GERMANY-2008-DE-02589SI

PATIENT
  Age: 39 Year
  Sex: Female

DRUGS (4)
  1. PRAMIPEXOLE DIHYDROCHLORIDE [Suspect]
     Indication: RESTLESS LEGS SYNDROME
     Route: 048
     Dates: start: 20080130
  2. EFFEXOR [Suspect]
     Indication: DEPRESSION
     Route: 048
     Dates: start: 20061110
  3. STILNOX [Concomitant]
     Indication: DEPRESSION
     Route: 048
     Dates: start: 20061111
  4. LAMICTAL [Concomitant]
     Indication: BIPOLAR DISORDER
     Route: 048
     Dates: start: 20061115

REACTIONS (1)
  - HYPOMANIA [None]
